FAERS Safety Report 7772048-0 (Version None)
Quarter: 2011Q3

REPORT INFORMATION
  Report Type: 
  Country: None (occurrence: None)
  Receive Date: 20110922
  Receipt Date: 20100902
  Transmission Date: 20111222
  Serious: Yes (Other)
  Sender: FDA-Public Use
  Company Number: US-ASTRAZENECA-2007UW16434

PATIENT
  Age: 43 Year
  Sex: Female
  Weight: 81.6 kg

DRUGS (33)
  1. RISPERDAL [Concomitant]
     Route: 065
  2. SINGULAIR [Concomitant]
     Indication: ASTHMA
     Route: 048
  3. COMBIVENT [Concomitant]
     Route: 065
  4. ZITHROMAX [Concomitant]
     Route: 065
  5. SEROQUEL [Suspect]
     Dosage: 100-200 MG
     Route: 048
     Dates: start: 20040622
  6. PROMETHAZINE [Concomitant]
     Route: 065
  7. AMOXICILLIN-CLAV [Concomitant]
     Dosage: 875/125 MG 1 TABLET TWICE DAILY
     Route: 065
  8. PATANOL [Concomitant]
     Route: 065
  9. LORATADINE [Concomitant]
     Route: 065
  10. ACTOS [Concomitant]
     Route: 065
  11. IBUPROFEN [Concomitant]
     Route: 065
  12. XOPENEX [Concomitant]
     Dosage: 0.63 MG/3 ML SOLUTION 1 VIAL THREE TIMES DAILY VIA NEBULIZER AS NEEDED
     Route: 065
  13. PHENTERMINE HCL [Concomitant]
     Route: 048
  14. SEROQUEL [Suspect]
     Indication: SCHIZOPHRENIA
     Dosage: 200-400 MG
     Route: 048
     Dates: start: 20030101, end: 20061101
  15. HYDROCODONE [Concomitant]
     Dosage: 5/500 MG
     Route: 065
  16. APRODINE [Concomitant]
     Dosage: 80-2.5 MG TWICE DAILY
     Route: 048
  17. ALPRAZOLAM [Concomitant]
     Route: 065
  18. DIAZEPAM [Concomitant]
     Route: 065
  19. FORTAMET [Concomitant]
     Route: 065
  20. FLONASE [Concomitant]
     Route: 045
  21. PREDNISOLONE [Concomitant]
     Route: 048
  22. AMOXICILLIN [Concomitant]
     Dosage: 500 MG TWICE DAILY, 500 MG THREE TIMES DAILY
     Route: 048
  23. AMARYL [Concomitant]
     Route: 065
  24. FUROSEMIDE [Concomitant]
     Route: 065
  25. ZYPREXA [Concomitant]
     Route: 065
  26. NAPROXEN [Concomitant]
     Route: 065
  27. CEPHALEXIN [Concomitant]
     Dosage: 250-500 MG FOUR TIMES DAILY
     Route: 048
  28. ERYTHROMYCIN [Concomitant]
     Route: 065
  29. ADVAIR DISKUS 100/50 [Concomitant]
     Dosage: 250/50 MCG ONE PUFF TWICE DAILY
     Route: 065
  30. CARISOPRODOL [Concomitant]
     Route: 048
  31. ALBUTEROL [Concomitant]
     Dosage: 90 MCG TWO PUFFS FOUR TIMES DAILY
     Route: 065
  32. CLOTRIMAZOLE [Concomitant]
     Route: 065
  33. BACLOFEN [Concomitant]
     Route: 065

REACTIONS (9)
  - GASTRIC DISORDER [None]
  - OEDEMA PERIPHERAL [None]
  - HYPERGLYCAEMIA [None]
  - CHOLECYSTITIS CHRONIC [None]
  - ASTHMA [None]
  - PANCREATITIS [None]
  - TYPE 2 DIABETES MELLITUS [None]
  - CHOLELITHIASIS [None]
  - BACK PAIN [None]
